FAERS Safety Report 9471034 (Version 3)
Quarter: 2013Q4

REPORT INFORMATION
  Report Type: Spontaneous
  Country: FR (occurrence: None)
  Receive Date: 20130816
  Receipt Date: 20131002
  Transmission Date: 20140711
  Serious: Yes (Hospitalization)
  Sender: FDA-Public Use
  Company Number: ACO_37799_2013

PATIENT
  Age: 51 Year
  Sex: Female
  Weight: 47 kg

DRUGS (11)
  1. FAMPYRA [Suspect]
     Indication: MULTIPLE SCLEROSIS
     Route: 048
     Dates: start: 20130617, end: 20130705
  2. REBIF (INTERFERON BETA-1A) [Concomitant]
  3. OXYBUTYNIN (OXYBUTYNIN HYDROCHLORIDE) [Concomitant]
  4. FUROSEMIDE (FUROSEMIDE) [Concomitant]
  5. SEROPLEX (ESCITALOPRAM OXALATE) [Concomitant]
  6. DITROPAN (OXYBUTYNIN HYDROCHLORIDE) [Concomitant]
  7. DOLIPRANE (PARACETAMOL) [Concomitant]
  8. BACLOFEN (BACLOFEN) [Concomitant]
  9. VALSARTAN (VALSARTAN) [Concomitant]
  10. CERIS (TROSPIUM CHLORIDE) [Concomitant]
  11. BISOPROLOL HEMIFUMARATE (BISOPROLOL HEMIFUMARATE) [Concomitant]

REACTIONS (2)
  - Pyelonephritis [None]
  - Contraindication to medical treatment [None]
